FAERS Safety Report 13417406 (Version 1)
Quarter: 2017Q2

REPORT INFORMATION
  Report Type: Spontaneous
  Country: US (occurrence: US)
  Receive Date: 20170406
  Receipt Date: 20170406
  Transmission Date: 20170830
  Serious: No
  Sender: FDA-Public Use
  Company Number: US-GLAXOSMITHKLINE-US2017GSK048003

PATIENT

DRUGS (1)
  1. COREG CR [Suspect]
     Active Substance: CARVEDILOL PHOSPHATE

REACTIONS (7)
  - Fall [Unknown]
  - Decreased appetite [Unknown]
  - Fatigue [Unknown]
  - Swelling [Unknown]
  - Asthenia [Unknown]
  - Depression [Unknown]
  - Adverse drug reaction [Unknown]
